FAERS Safety Report 7455879-6 (Version None)
Quarter: 2011Q2

REPORT INFORMATION
  Report Type: 
  Country: None (occurrence: None)
  Receive Date: 20110503
  Receipt Date: 20110429
  Transmission Date: 20111010
  Serious: Yes (Hospitalization)
  Sender: FDA-Public Use
  Company Number: A0925147A

PATIENT
  Age: 66 Year
  Sex: Female

DRUGS (5)
  1. TENORMIN [Suspect]
     Indication: BLOOD PRESSURE
  2. NORVASC [Suspect]
  3. ALLI [Suspect]
     Indication: WEIGHT LOSS DIET
     Route: 048
     Dates: start: 20100301
  4. LASIX [Suspect]
     Indication: BLOOD PRESSURE
  5. NORVASC [Suspect]
     Indication: BLOOD PRESSURE

REACTIONS (8)
  - DIZZINESS [None]
  - ECHOCARDIOGRAM [None]
  - BLOOD PRESSURE FLUCTUATION [None]
  - PRESYNCOPE [None]
  - DRUG INTERACTION [None]
  - CARDIAC STRESS TEST [None]
  - ULTRASOUND SCAN [None]
  - BLOOD PRESSURE DECREASED [None]
